FAERS Safety Report 21071032 (Version 17)
Quarter: 2024Q2

REPORT INFORMATION
  Report Type: Report from Study
  Country: CA (occurrence: CA)
  Receive Date: 20220712
  Receipt Date: 20240625
  Transmission Date: 20240716
  Serious: Yes (Other)
  Sender: FDA-Public Use
  Company Number: CA-ROCHE-3136854

PATIENT
  Age: 42 Year
  Sex: Female

DRUGS (1)
  1. OCREVUS [Suspect]
     Active Substance: OCRELIZUMAB
     Indication: Relapsing-remitting multiple sclerosis
     Dosage: MORE DOSAGE INFORMATION IS 300 MG AT DAY 0 AND 14, THEN 600 MG EVERY 6 MONTH
     Route: 042
     Dates: start: 20220706

REACTIONS (10)
  - Multiple sclerosis [Unknown]
  - COVID-19 [Recovered/Resolved]
  - Headache [Unknown]
  - Fatigue [Unknown]
  - Gait disturbance [Unknown]
  - Pain [Unknown]
  - Cough [Not Recovered/Not Resolved]
  - Oral herpes [Unknown]
  - Infusion related reaction [Unknown]
  - Cellulitis [Recovered/Resolved]

NARRATIVE: CASE EVENT DATE: 20220710
